FAERS Safety Report 6911246-2 (Version None)
Quarter: 2010Q3

REPORT INFORMATION
  Report Type: 
  Country: None (occurrence: None)
  Receive Date: 20100806
  Receipt Date: 20100728
  Transmission Date: 20110219
  Serious: Yes (Other)
  Sender: FDA-Public Use
  Company Number: PHHY2010VE50068

PATIENT
  Sex: Male

DRUGS (4)
  1. SANDOSTATIN [Suspect]
     Indication: ACROMEGALY
     Dosage: 0.1 ML, QD
     Route: 058
     Dates: start: 20100401
  2. SANDOSTATIN [Suspect]
     Dosage: 0.05 ML, TID
     Route: 058
     Dates: start: 20100724
  3. DOSTINEX [Concomitant]
     Indication: ACROMEGALY
     Dosage: 5MG ONLY MONDAY AND THURSDAY
     Route: 048
     Dates: start: 20100101
  4. ATORVASTATIN [Concomitant]
     Dosage: UNK
     Route: 048
     Dates: start: 20091201

REACTIONS (4)
  - BILIARY COLIC [None]
  - DEFORMITY [None]
  - GALLBLADDER OPERATION [None]
  - PITUITARY TUMOUR REMOVAL [None]
